FAERS Safety Report 5845134-X (Version None)
Quarter: 2008Q3

REPORT INFORMATION
  Report Type: 
  Country: None (occurrence: None)
  Receive Date: 20080813
  Receipt Date: 20080813
  Transmission Date: 20090109
  Serious: No
  Sender: FDA-Public Use
  Company Number: None

PATIENT
  Age: 51 Year
  Sex: Male
  Weight: 90.7194 kg

DRUGS (1)
  1. ZICAM MATRIXX [Suspect]
     Indication: NASOPHARYNGITIS
     Dosage: NASAL SPRAY
     Dates: start: 20050315, end: 20050315

REACTIONS (5)
  - ANOSMIA [None]
  - BURNING SENSATION [None]
  - NASAL DISCOMFORT [None]
  - PAIN [None]
  - PHARMACEUTICAL PRODUCT COMPLAINT [None]
